FAERS Safety Report 5890385-1 (Version None)
Quarter: 2008Q3

REPORT INFORMATION
  Report Type: 
  Country: None (occurrence: None)
  Receive Date: 20080918
  Receipt Date: 20080905
  Transmission Date: 20090109
  Serious: Yes (Other)
  Sender: FDA-Public Use
  Company Number: B0536208A

PATIENT
  Age: 6 Year
  Sex: Female

DRUGS (2)
  1. FLUTICASONE PROPIONATE (FORMULATION UNKNOWN) (FLUTICASONE PROPIONATE) [Suspect]
     Indication: ASTHMA
     Dosage: INHALED
     Route: 055
  2. BECLOMETHASONE DIPROPIONATE [Suspect]
     Indication: ASTHMA
     Dosage: 80 MCG/TWICE PER DAY/INHALED
     Route: 055

REACTIONS (9)
  - ADRENAL INSUFFICIENCY [None]
  - CUSHINGOID [None]
  - DIZZINESS [None]
  - FATIGUE [None]
  - HYPOGLYCAEMIC SEIZURE [None]
  - LETHARGY [None]
  - PNEUMONIA [None]
  - VOMITING [None]
  - WEIGHT INCREASED [None]
